FAERS Safety Report 18731850 (Version 1)
Quarter: 2021Q1

REPORT INFORMATION
  Report Type: Spontaneous
  Country: CA (occurrence: CA)
  Receive Date: 20210112
  Receipt Date: 20210112
  Transmission Date: 20210419
  Serious: Yes (Hospitalization, Other)
  Sender: FDA-Public Use
  Company Number: CA-TEVA-2020-CA-1864650

PATIENT
  Age: 2 Year
  Sex: Male

DRUGS (14)
  1. CHOLECALCIFEROL [Concomitant]
     Active Substance: CHOLECALCIFEROL
  2. MANNITOL. [Concomitant]
     Active Substance: MANNITOL
  3. DEXAMETHASONE SODIUM PHOSPHATE INJ USP 4MG/ML [Concomitant]
     Active Substance: DEXAMETHASONE SODIUM PHOSPHATE
  4. FILGRASTIM [Concomitant]
     Active Substance: FILGRASTIM
  5. GRANISETRON [Concomitant]
     Active Substance: GRANISETRON
  6. SULFAMETHOXAZOLE AND TRIMETHOPRIM [Concomitant]
     Active Substance: SULFAMETHOXAZOLE\TRIMETHOPRIM
  7. HYDROCORTISONE. [Concomitant]
     Active Substance: HYDROCORTISONE
  8. POLYETHYLENE GLYCOL [Concomitant]
     Active Substance: POLYETHYLENE GLYCOLS
  9. EPINEPHRINE. [Concomitant]
     Active Substance: EPINEPHRINE
  10. ETOPOSIDE INJECTION [Suspect]
     Active Substance: ETOPOSIDE
  11. DEXAMETHASONE. [Concomitant]
     Active Substance: DEXAMETHASONE
  12. DIPHENHYDRAMINE HYDROCHLORIDE INJECTION USP [Concomitant]
     Active Substance: DIPHENHYDRAMINE HYDROCHLORIDE
  13. CISPLATIN INJECTION [Concomitant]
     Active Substance: CISPLATIN
  14. MAGNESIUM SULFATE. [Concomitant]
     Active Substance: MAGNESIUM SULFATE

REACTIONS (1)
  - Infusion related reaction [Recovering/Resolving]
